FAERS Safety Report 4501833-3 (Version None)
Quarter: 2004Q4

REPORT INFORMATION
  Report Type: 
  Country: None (occurrence: None)
  Receive Date: 20041115
  Receipt Date: 20041115
  Transmission Date: 20050328
  Serious: Yes (Hospitalization)
  Sender: FDA-Public Use
  Company Number: None

PATIENT
  Age: 48 Year
  Sex: Male
  Weight: 74.6 kg

DRUGS (1)
  1. METOPROLOL [Suspect]

REACTIONS (3)
  - ASTHENIA [None]
  - HYPOTENSION [None]
  - SOMNOLENCE [None]
